FAERS Safety Report 4416310-8 (Version None)
Quarter: 2004Q3

REPORT INFORMATION
  Report Type: 
  Country: None (occurrence: None)
  Receive Date: 20040803
  Receipt Date: 20040723
  Transmission Date: 20050211
  Serious: Yes (Other)
  Sender: FDA-Public Use
  Company Number: USA-2004-0016147

PATIENT
  Age: 91 Year
  Sex: Male

DRUGS (2)
  1. OXYCONTIN [Suspect]
     Indication: PAIN
     Dosage: ORAL
     Route: 048
  2. ZOLOFT [Concomitant]

REACTIONS (2)
  - CARDIO-RESPIRATORY ARREST [None]
  - COMA [None]
